FAERS Safety Report 6099255-X (Version None)
Quarter: 2009Q1

REPORT INFORMATION
  Report Type: 
  Country: None (occurrence: None)
  Receive Date: 20090303
  Receipt Date: 20090226
  Transmission Date: 20090719
  Serious: No
  Sender: FDA-Public Use
  Company Number: US-JNJFOC-20090300086

PATIENT
  Sex: Female
  Weight: 72.58 kg

DRUGS (9)
  1. FENTANYL TRANSDERMAL SYSTEM [Suspect]
     Indication: NECK PAIN
     Route: 062
  2. FENTANYL TRANSDERMAL SYSTEM [Suspect]
     Indication: BACK PAIN
     Route: 062
  3. TRAZODONE HCL [Concomitant]
     Indication: SLEEP DISORDER
     Route: 048
  4. DIAZEPAM [Concomitant]
     Route: 048
  5. AMBIEN [Concomitant]
     Route: 048
  6. LEXAPRO [Concomitant]
     Route: 048
  7. PERCOCET [Concomitant]
     Route: 048
  8. LAMICTAL [Concomitant]
     Route: 048
  9. ESTRADIOL [Concomitant]
     Route: 048

REACTIONS (8)
  - BACK PAIN [None]
  - BEDRIDDEN [None]
  - DRUG INEFFECTIVE [None]
  - INCORRECT DRUG ADMINISTRATION DURATION [None]
  - NECK PAIN [None]
  - POOR QUALITY SLEEP [None]
  - WITHDRAWAL SYNDROME [None]
  - WRONG TECHNIQUE IN DRUG USAGE PROCESS [None]
